FAERS Safety Report 11745888 (Version 1)
Quarter: 2015Q4

REPORT INFORMATION
  Report Type: Spontaneous
  Country: IT (occurrence: IT)
  Receive Date: 20151117
  Receipt Date: 20151117
  Transmission Date: 20160304
  Serious: Yes (Hospitalization)
  Sender: FDA-Public Use
  Company Number: PHHY2015IT144943

PATIENT
  Age: 60 Year
  Sex: Female
  Weight: 64 kg

DRUGS (7)
  1. PREDNISON [Concomitant]
     Active Substance: PREDNISONE
     Indication: PROPHYLAXIS
     Dosage: 37.5 MG
     Route: 048
  2. AROMASIN [Concomitant]
     Active Substance: EXEMESTANE
     Indication: ADJUVANT THERAPY
     Dosage: 25 MG
     Route: 048
  3. SIMVASTATIN. [Concomitant]
     Active Substance: SIMVASTATIN
     Indication: HYPERCHOLESTEROLAEMIA
     Dosage: 20 MG
     Route: 048
  4. CHOLECALCIFEROL [Concomitant]
     Active Substance: CHOLECALCIFEROL
     Indication: VITAMIN SUPPLEMENTATION
     Dosage: 100000 UL
     Route: 048
  5. LEVOSULPIRIDE [Concomitant]
     Active Substance: LEVOSULPIRIDE
     Indication: PROPHYLAXIS OF NAUSEA AND VOMITING
     Dosage: 10 DRP
     Route: 048
  6. AFINITOR [Suspect]
     Active Substance: EVEROLIMUS
     Indication: INVASIVE BREAST CARCINOMA
     Dosage: 10 MG, QD
     Route: 048
     Dates: start: 20150929, end: 20151026
  7. ESOMEPRAZOLE [Concomitant]
     Active Substance: ESOMEPRAZOLE
     Indication: PROPHYLAXIS
     Dosage: 40 MG
     Route: 048

REACTIONS (4)
  - Dyspnoea exertional [Not Recovered/Not Resolved]
  - Pyrexia [Not Recovered/Not Resolved]
  - Procalcitonin increased [Unknown]
  - Tachypnoea [Not Recovered/Not Resolved]

NARRATIVE: CASE EVENT DATE: 20151026
